FAERS Safety Report 8014522-8 (Version None)
Quarter: 2011Q4

REPORT INFORMATION
  Report Type: 
  Country: None (occurrence: None)
  Receive Date: 20111223
  Receipt Date: 20111212
  Transmission Date: 20120403
  Serious: No
  Sender: FDA-Public Use
  Company Number: THQ2011A08346

PATIENT
  Age: 69 Year
  Sex: Male

DRUGS (1)
  1. PIOGLITAZONE HYDROCHLORIDE/METFORMIN HYDROCHLORIDE [Suspect]
     Indication: DIABETES MELLITUS
     Dosage: (PIOGLITAZONE HYDROCHLORIDE 15 MG/ METFORMIN HYDROCHLORIDE 850 MG, 1 D)
     Route: 048
     Dates: start: 20100527, end: 20110520

REACTIONS (1)
  - BLADDER CANCER [None]
